FAERS Safety Report 8335044-0 (Version None)
Quarter: 2012Q2

REPORT INFORMATION
  Report Type: 
  Country: None (occurrence: None)
  Receive Date: 20120503
  Receipt Date: 20100414
  Transmission Date: 20120825
  Serious: No
  Sender: FDA-Public Use
  Company Number: US-TEVA-2010002188

PATIENT
  Sex: Female
  Weight: 68.1 kg

DRUGS (6)
  1. PROZAC [Concomitant]
     Indication: DEPRESSION
  2. NUVIGIL [Suspect]
     Indication: SLEEP APNOEA SYNDROME
     Route: 048
     Dates: start: 20100406
  3. ASPIRIN [Concomitant]
     Indication: POOR PERIPHERAL CIRCULATION
     Dosage: 325 MILLIGRAM;
     Dates: start: 20070101
  4. ASPIRIN [Concomitant]
     Indication: VARICOSE VEIN
  5. VITAMIN [Concomitant]
  6. NUVIGIL [Suspect]
     Indication: CIRCADIAN RHYTHM SLEEP DISORDER

REACTIONS (2)
  - TREMOR [None]
  - DRUG EFFECT INCREASED [None]
